FAERS Safety Report 21654126 (Version 1)
Quarter: 2022Q4

REPORT INFORMATION
  Report Type: Report from Study
  Country: JP (occurrence: JP)
  Receive Date: 20221129
  Receipt Date: 20221129
  Transmission Date: 20230113
  Serious: Yes (Hospitalization, Disabling)
  Sender: FDA-Public Use
  Company Number: JP-ABBVIE-19K-087-3170132-00

PATIENT
  Age: 68 Year
  Sex: Male
  Weight: 60 kg

DRUGS (29)
  1. CARBIDOPA\LEVODOPA [Suspect]
     Active Substance: CARBIDOPA\LEVODOPA
     Indication: Parkinson^s disease
     Dosage: MD: 2 ML, CD: 1 ML/HR ? 14 HRS, ED: 1 ML/UNIT ? 0
     Route: 050
     Dates: start: 20210315, end: 20210317
  2. CARBIDOPA\LEVODOPA [Suspect]
     Active Substance: CARBIDOPA\LEVODOPA
     Dosage: MD: 0.5 ML, CD: 0.5 ML/HR ? 14 HRS, ED: 0.5 ML/UNIT ? 0
     Route: 050
     Dates: start: 20210323, end: 20210405
  3. CARBIDOPA\LEVODOPA [Suspect]
     Active Substance: CARBIDOPA\LEVODOPA
     Dosage: MD: 9.5 ML?CD: 4.6 ML/HR X 16 HRS?ED: 3.5 ML/UNIT X 1
     Route: 050
     Dates: start: 20201001
  4. CARBIDOPA\LEVODOPA [Suspect]
     Active Substance: CARBIDOPA\LEVODOPA
     Dosage: MD: 8 ML?CD: 3.4 ML/HR ? 16 HRS?ED: 1 ML/UNIT ? 1
     Route: 050
     Dates: start: 20191030, end: 20191111
  5. CARBIDOPA\LEVODOPA [Suspect]
     Active Substance: CARBIDOPA\LEVODOPA
     Dosage: CONTINUOUS DOSE 4.5 ML TO 5.0 ML
     Route: 050
     Dates: start: 201912
  6. CARBIDOPA\LEVODOPA [Suspect]
     Active Substance: CARBIDOPA\LEVODOPA
     Dosage: MD: 10 ML, CD: 5 ML, ED: 4 ML
     Route: 050
     Dates: start: 20191106, end: 2019
  7. CARBIDOPA\LEVODOPA [Suspect]
     Active Substance: CARBIDOPA\LEVODOPA
     Dosage: MD: 0.1 ML, CD: 0.1 ML/HR ? 14 HRS, ED: 0.1 ML/UNIT ? 0
     Route: 050
     Dates: start: 20210318, end: 20210319
  8. CARBIDOPA\LEVODOPA [Suspect]
     Active Substance: CARBIDOPA\LEVODOPA
     Dosage: CONTINUOUS DOSE 5.0 ML TO 4.5 ML
     Route: 050
     Dates: start: 20191214, end: 201912
  9. CARBIDOPA\LEVODOPA [Suspect]
     Active Substance: CARBIDOPA\LEVODOPA
     Dosage: MD: 0.5 ML, CD: 1.0 ML/HR ? 14 HRS, ED: 0.5 ML/UNIT ? 0
     Route: 050
     Dates: start: 20210321, end: 20210322
  10. CARBIDOPA\LEVODOPA [Suspect]
     Active Substance: CARBIDOPA\LEVODOPA
     Dosage: MD: 0.5 ML, CD: 0.5 ML/HR ? 14 HRS, ED: 0.1 ML/UNIT ? 0
     Route: 050
     Dates: start: 20210320, end: 20210320
  11. CARBIDOPA\LEVODOPA [Suspect]
     Active Substance: CARBIDOPA\LEVODOPA
     Dosage: MD: 11 ML?CD: 6.5 ML/HR ? 16 HRS?ED: 4 ML/UNIT ? 0
     Route: 050
     Dates: start: 20191112, end: 20191225
  12. CARBIDOPA\LEVODOPA [Suspect]
     Active Substance: CARBIDOPA\LEVODOPA
     Dosage: MD: 10 ML?CD: 5 ML/HR X 16 HRS?ED: 4 ML/UNIT X 0
     Route: 050
     Dates: start: 20191226, end: 20200422
  13. CARBIDOPA\LEVODOPA [Suspect]
     Active Substance: CARBIDOPA\LEVODOPA
     Route: 050
     Dates: start: 20201001, end: 20210314
  14. CARBIDOPA\LEVODOPA [Suspect]
     Active Substance: CARBIDOPA\LEVODOPA
     Dosage: MD: 10 ML?CD: 4.8 ML/HR X 16 HRS?ED: 3.5 ML/UNIT X 1
     Route: 050
     Dates: start: 20200423, end: 20200930
  15. ROTIGOTINE [Suspect]
     Active Substance: ROTIGOTINE
     Indication: Parkinson^s disease
     Route: 062
     Dates: start: 20201007, end: 20201007
  16. ROTIGOTINE [Suspect]
     Active Substance: ROTIGOTINE
     Indication: Parkinson^s disease
     Route: 062
     Dates: start: 20201008, end: 20201014
  17. ROTIGOTINE [Suspect]
     Active Substance: ROTIGOTINE
     Indication: Parkinson^s disease
     Route: 062
     Dates: start: 20201015, end: 20210303
  18. METHYLCOBALAMIN [Concomitant]
     Active Substance: METHYLCOBALAMIN
     Indication: Product used for unknown indication
     Route: 048
     Dates: end: 20210303
  19. ENTACAPONE [Concomitant]
     Active Substance: ENTACAPONE
     Indication: Parkinson^s disease
     Route: 048
     Dates: start: 20191114, end: 20200219
  20. ENTACAPONE [Concomitant]
     Active Substance: ENTACAPONE
     Indication: Parkinson^s disease
     Route: 048
     Dates: start: 20200220, end: 20200918
  21. ENTACAPONE [Concomitant]
     Active Substance: ENTACAPONE
     Indication: Parkinson^s disease
     Route: 048
     Dates: start: 20200919, end: 20200924
  22. ENTACAPONE [Concomitant]
     Active Substance: ENTACAPONE
     Indication: Parkinson^s disease
     Route: 048
     Dates: start: 20200925, end: 20210303
  23. LANSOPRAZOLE [Concomitant]
     Active Substance: LANSOPRAZOLE
     Indication: Product used for unknown indication
     Dosage: 15 MILLIGRAM
     Route: 048
     Dates: end: 20210409
  24. QUETIAPINE FUMARATE [Concomitant]
     Active Substance: QUETIAPINE FUMARATE
     Indication: Product used for unknown indication
     Dosage: 50 MILLIGRAM
     Route: 048
     Dates: start: 20210323, end: 20210328
  25. SENNOSIDES [Concomitant]
     Active Substance: SENNOSIDES
     Indication: Product used for unknown indication
     Dosage: 24 MILLIGRAM
     Route: 048
     Dates: end: 20210331
  26. CLONAZEPAM [Concomitant]
     Active Substance: CLONAZEPAM
     Indication: Product used for unknown indication
     Dosage: 1.0 MILLIGRAM
     Route: 048
     Dates: end: 20210409
  27. Yokukansan extract [Concomitant]
     Indication: Product used for unknown indication
     Dosage: 7.5 GRAM
     Route: 048
     Dates: start: 20210316, end: 20210409
  28. RAMELTEON [Concomitant]
     Active Substance: RAMELTEON
     Indication: Product used for unknown indication
     Dosage: 8 UNKNOWN
     Route: 048
     Dates: start: 20200716, end: 20210409
  29. TRAZODONE HYDROCHLORIDE [Concomitant]
     Active Substance: TRAZODONE HYDROCHLORIDE
     Indication: Product used for unknown indication
     Dosage: 25 MILLIGRAM
     Route: 048
     Dates: start: 20201021, end: 20210120

REACTIONS (24)
  - Stoma site infection [Recovered/Resolved]
  - Delusion [Recovered/Resolved with Sequelae]
  - Pneumonia [Recovering/Resolving]
  - Hallucination [Recovered/Resolved with Sequelae]
  - Device use issue [Unknown]
  - Mobility decreased [Recovered/Resolved]
  - Mobility decreased [Unknown]
  - Delusion [Recovering/Resolving]
  - Malaise [Unknown]
  - Aggression [Unknown]
  - Stoma site discharge [Recovering/Resolving]
  - Stoma site erythema [Recovering/Resolving]
  - Dyskinesia [Recovered/Resolved]
  - Hallucination [Recovering/Resolving]
  - Stoma site extravasation [Recovered/Resolved]
  - Abdominal pain [Not Recovered/Not Resolved]
  - Drug ineffective [Unknown]
  - On and off phenomenon [Recovered/Resolved]
  - Dyskinesia [Recovering/Resolving]
  - Hallucination, auditory [Unknown]
  - Impulse-control disorder [Recovered/Resolved with Sequelae]
  - Parkinson^s disease [Unknown]
  - Hallucination, auditory [Recovering/Resolving]
  - Dyskinesia [Recovered/Resolved]

NARRATIVE: CASE EVENT DATE: 20191107
